FAERS Safety Report 23664761 (Version 2)
Quarter: 2024Q3

REPORT INFORMATION
  Report Type: Spontaneous
  Country: CL (occurrence: CL)
  Receive Date: 20240322
  Receipt Date: 20240805
  Transmission Date: 20241016
  Serious: Yes (Death, Hospitalization)
  Sender: PFIZER
  Company Number: CL-PFIZER INC-PV202400039246

PATIENT
  Age: 51 Year
  Sex: Male

DRUGS (1)
  1. INLYTA [Suspect]
     Active Substance: AXITINIB
     Indication: Renal cancer metastatic
     Dosage: UNK
     Dates: start: 202311

REACTIONS (4)
  - Death [Fatal]
  - Epistaxis [Unknown]
  - Hypercalcaemia [Unknown]
  - Neoplasm progression [Unknown]

NARRATIVE: CASE EVENT DATE: 20240311
